FAERS Safety Report 15042690 (Version 1)
Quarter: 2018Q2

REPORT INFORMATION
  Report Type: Spontaneous
  Country: US (occurrence: US)
  Receive Date: 20180621
  Receipt Date: 20180621
  Transmission Date: 20180711
  Serious: Yes (Life-Threatening, Hospitalization)
  Sender: FDA-Public Use
  Company Number: US-ROCHE-2141521

PATIENT
  Sex: Male

DRUGS (2)
  1. SALMETEROL [Concomitant]
     Active Substance: SALMETEROL
  2. OCREVUS [Suspect]
     Active Substance: OCRELIZUMAB
     Indication: MULTIPLE SCLEROSIS
     Route: 065

REACTIONS (3)
  - Aggression [Unknown]
  - Seizure [Unknown]
  - Agitation [Unknown]
